FAERS Safety Report 23262269 (Version 2)
Quarter: 2024Q1

REPORT INFORMATION
  Report Type: Report from Study
  Country: US (occurrence: US)
  Receive Date: 20231205
  Receipt Date: 20240102
  Transmission Date: 20240410
  Serious: Yes (Hospitalization, Other)
  Sender: FDA-Public Use
  Company Number: US-OTSUKA-2023_026081

PATIENT
  Age: 88 Year
  Sex: Male

DRUGS (1)
  1. CEDAZURIDINE\DECITABINE [Suspect]
     Active Substance: CEDAZURIDINE\DECITABINE
     Indication: Myelodysplastic syndrome
     Dosage: 1 DF (35 MG DECITABINE AND 100 MG CEDAZURIDINE), QD (ON DAYS 1-5) OF EACH 28 DAY CYCLE
     Route: 048
     Dates: start: 202306

REACTIONS (6)
  - Coronary artery disease [Recovered/Resolved]
  - Cardiac failure congestive [Unknown]
  - Fluid retention [Unknown]
  - Confusional state [Unknown]
  - Brain fog [Unknown]
  - Asthenia [Unknown]

NARRATIVE: CASE EVENT DATE: 20231012
